FAERS Safety Report 11403411 (Version 1)
Quarter: 2015Q3

REPORT INFORMATION
  Report Type: Spontaneous
  Country: US (occurrence: US)
  Receive Date: 20150821
  Receipt Date: 20150821
  Transmission Date: 20151125
  Serious: No
  Sender: FDA-Public Use
  Company Number: US-BIOGENIDEC-2015BI024651

PATIENT
  Sex: Male

DRUGS (4)
  1. AVONEX [Suspect]
     Active Substance: INTERFERON BETA-1A
     Indication: MULTIPLE SCLEROSIS
     Route: 030
     Dates: start: 20110929, end: 201503
  2. AVONEX [Suspect]
     Active Substance: INTERFERON BETA-1A
     Indication: MULTIPLE SCLEROSIS
     Route: 030
     Dates: start: 20110929
  3. AUBAGIO [Concomitant]
     Active Substance: TERIFLUNOMIDE
  4. AVONEX [Suspect]
     Active Substance: INTERFERON BETA-1A
     Indication: MULTIPLE SCLEROSIS
     Route: 030

REACTIONS (8)
  - Multiple sclerosis [Unknown]
  - General symptom [Unknown]
  - Muscle atrophy [Unknown]
  - Nausea [Unknown]
  - Muscle fibrosis [Unknown]
  - Pain in extremity [Unknown]
  - Malaise [Unknown]
  - Headache [Unknown]
